FAERS Safety Report 17418939 (Version 1)
Quarter: 2020Q1

REPORT INFORMATION
  Report Type: Spontaneous
  Country: GB (occurrence: GB)
  Receive Date: 20200209
  Receipt Date: 20200209
  Transmission Date: 20200409
  Serious: Yes (Life-Threatening, Hospitalization)
  Sender: FDA-Public Use
  Company Number: GB-DEXPHARM-20200107

PATIENT
  Age: 84 Year
  Sex: Female

DRUGS (5)
  1. METFORMIN HYDROCHLORIDE. [Concomitant]
     Active Substance: METFORMIN HYDROCHLORIDE
  2. OMEPRAZOLE. [Suspect]
     Active Substance: OMEPRAZOLE
     Indication: PRODUCT USED FOR UNKNOWN INDICATION
     Route: 048
  3. TEVA UK DORZOLAMIDE AND TIMOLOL [Concomitant]
  4. BENDROFLUMETHIAZIDE [Interacting]
     Active Substance: BENDROFLUMETHIAZIDE
     Indication: PRODUCT USED FOR UNKNOWN INDICATION
     Route: 048
  5. BIMATOPROST. [Concomitant]
     Active Substance: BIMATOPROST

REACTIONS (2)
  - Drug interaction [Unknown]
  - Hyponatraemia [Recovered/Resolved]
